FAERS Safety Report 11054992 (Version 1)
Quarter: 2015Q2

REPORT INFORMATION
  Report Type: Spontaneous
  Country: US (occurrence: None)
  Receive Date: 20150421
  Receipt Date: 20150421
  Transmission Date: 20150821
  Serious: Yes (Other)
  Sender: FDA-Public Use
  Company Number: None

PATIENT
  Age: 69 Year
  Sex: Female
  Weight: 92.99 kg

DRUGS (14)
  1. ADVIL [Concomitant]
     Active Substance: IBUPROFEN
  2. ZYRTEC [Concomitant]
     Active Substance: CETIRIZINE HYDROCHLORIDE
  3. BETAMETHASONE DIPROPIONATE. [Concomitant]
     Active Substance: BETAMETHASONE DIPROPIONATE
  4. LEVOTHYROXINE [Concomitant]
     Active Substance: LEVOTHYROXINE
  5. PREDNISONE. [Concomitant]
     Active Substance: PREDNISONE
  6. LISINOPRIL. [Concomitant]
     Active Substance: LISINOPRIL
  7. BENDARYL [Concomitant]
  8. BEVACIZUMAB, GENENTECH - COMPOUND BY PINE PHARMACEUTICALS 1.25MG/0.5ML [Suspect]
     Active Substance: BEVACIZUMAB
     Indication: MACULAR DEGENERATION
     Dosage: STRENGTH: 1.25MG/0.05ML, QUANITY: 0.05ML, EVERY 6 WEEKS, INTR...EYE INJECTION
     Dates: start: 20141014, end: 20150107
  9. BABY ASA [Concomitant]
     Active Substance: ASPIRIN
  10. BEVACIZUMAB, GENENTECH - COMPOUND BY PINE PHARMACEUTICALS 1.25MG/0.5ML [Suspect]
     Active Substance: BEVACIZUMAB
     Indication: EYE DISORDER
     Dosage: STRENGTH: 1.25MG/0.05ML, QUANITY: 0.05ML, EVERY 6 WEEKS, INTR...EYE INJECTION
     Dates: start: 20141014, end: 20150107
  11. ZANTAC [Concomitant]
     Active Substance: RANITIDINE HYDROCHLORIDE
  12. METHYLPREDOLONE [Concomitant]
  13. CLOBETASIOL PROPIONATE [Concomitant]
  14. SARNA LOTION [Concomitant]

REACTIONS (4)
  - Pruritus [None]
  - Rash [None]
  - Eye pruritus [None]
  - Eyelid oedema [None]

NARRATIVE: CASE EVENT DATE: 20141014
